FAERS Safety Report 5378259-6 (Version None)
Quarter: 2007Q3

REPORT INFORMATION
  Report Type: 
  Country: None (occurrence: None)
  Receive Date: 20070702
  Receipt Date: 20070622
  Transmission Date: 20080115
  Serious: Yes (Death, Hospitalization)
  Sender: FDA-Public Use
  Company Number: MEDI-0005843

PATIENT
  Age: 69 Year
  Sex: Male

DRUGS (12)
  1. ETHYOL [Suspect]
     Indication: RADIOTHERAPY
     Dosage: 500 MG, 5 IN 5 D, SUBCUTANEOUS
     Route: 058
     Dates: start: 20070530, end: 20070614
  2. RADIATION THERAPY [Concomitant]
  3. CARBOPLATIN [Concomitant]
  4. DILTIAZEM [Concomitant]
  5. METFORMIN (METFORMIN) [Concomitant]
  6. ARANESP [Concomitant]
  7. NEUPOGEN [Concomitant]
  8. ZETIA [Concomitant]
  9. PRAVASTATIN [Concomitant]
  10. GLIPIZIDE [Concomitant]
  11. TRANDOLAPRIL [Concomitant]
  12. GLUCOVITE [Concomitant]

REACTIONS (7)
  - ASTHENIA [None]
  - FATIGUE [None]
  - HYPONATRAEMIA [None]
  - NEUTROPENIA [None]
  - PNEUMONIA [None]
  - RASH [None]
  - SUDDEN DEATH [None]
